FAERS Safety Report 7380422-X (Version None)
Quarter: 2011Q1

REPORT INFORMATION
  Report Type: 
  Country: None (occurrence: None)
  Receive Date: 20110324
  Receipt Date: 20110324
  Transmission Date: 20110831
  Serious: Yes (Life-Threatening)
  Sender: FDA-Public Use
  Company Number: None

PATIENT
  Age: 59 Year
  Sex: Female
  Weight: 110 kg

DRUGS (1)
  1. FERAHEME [Suspect]
     Dosage: 510 MG ONCE A WEEK X 2 IV BOLUS
     Route: 040
     Dates: start: 20110106, end: 20110113

REACTIONS (7)
  - NAUSEA [None]
  - UNRESPONSIVE TO STIMULI [None]
  - PRESYNCOPE [None]
  - URINARY INCONTINENCE [None]
  - RESPIRATORY DISORDER [None]
  - CONVULSION [None]
  - ATRIAL FIBRILLATION [None]
